FAERS Safety Report 8227347-5 (Version None)
Quarter: 2012Q1

REPORT INFORMATION
  Report Type: 
  Country: None (occurrence: None)
  Receive Date: 20120322
  Receipt Date: 20120313
  Transmission Date: 20120608
  Serious: Yes (Other)
  Sender: FDA-Public Use
  Company Number: BR-BAYER-2012-024342

PATIENT
  Age: 22 Year
  Sex: Female
  Weight: 52 kg

DRUGS (2)
  1. YASMIN [Suspect]
     Indication: CONTRACEPTION
     Dosage: 1 DF, QD
     Route: 048
     Dates: start: 20110501
  2. CALVULIN BD [Concomitant]
     Indication: TONSILLITIS
     Dosage: 1 DF, BID
     Route: 048
     Dates: start: 20120301, end: 20120307

REACTIONS (1)
  - VAGINAL HAEMORRHAGE [None]
